FAERS Safety Report 18589319 (Version 1)
Quarter: 2020Q4

REPORT INFORMATION
  Report Type: Spontaneous
  Country: SE (occurrence: SE)
  Receive Date: 20201208
  Receipt Date: 20201208
  Transmission Date: 20210114
  Serious: Yes (Death)
  Sender: FDA-Public Use
  Company Number: SE-BIOVITRUM-2020SE7184

PATIENT
  Age: 67 Year
  Sex: Male

DRUGS (1)
  1. ANAKINRA [Suspect]
     Active Substance: ANAKINRA
     Indication: COVID-19

REACTIONS (3)
  - Candida sepsis [Fatal]
  - Cardiac failure [Fatal]
  - Off label use [Recovered/Resolved]
